FAERS Safety Report 9852710 (Version 1)
Quarter: 2014Q1

REPORT INFORMATION
  Report Type: Spontaneous
  Country: US (occurrence: US)
  Receive Date: 20140129
  Receipt Date: 20140129
  Transmission Date: 20141002
  Serious: No
  Sender: FDA-Public Use
  Company Number: US-BAYER-2014-014975

PATIENT
  Age: 23 Year
  Sex: Female
  Weight: 86.17 kg

DRUGS (2)
  1. ALEVE TABLET [Suspect]
     Indication: HEADACHE
     Dosage: 2 DF, TID
     Route: 048
     Dates: start: 201311
  2. ALEVE TABLET [Suspect]
     Indication: PAIN

REACTIONS (2)
  - Extra dose administered [None]
  - Incorrect drug administration duration [None]
